FAERS Safety Report 4494990-9 (Version None)
Quarter: 2004Q4

REPORT INFORMATION
  Report Type: 
  Country: None (occurrence: None)
  Receive Date: 20041108
  Receipt Date: 20041028
  Transmission Date: 20050328
  Serious: Yes (Hospitalization)
  Sender: FDA-Public Use
  Company Number: US-JNJFOC-20040901752

PATIENT
  Sex: Female
  Weight: 80.74 kg

DRUGS (10)
  1. INFLIXIMAB [Suspect]
     Indication: RHEUMATOID ARTHRITIS
     Route: 042
  2. METHOTREXATE SODIUM [Concomitant]
  3. COUMADIN [Concomitant]
  4. FUROSEMIDE [Concomitant]
  5. SYNTHROID [Concomitant]
  6. FOLIC ACID [Concomitant]
  7. ALDACTONE [Concomitant]
  8. ISOSORBIDE [Concomitant]
  9. GLIPZIDE [Concomitant]
  10. DIGOXIN [Concomitant]

REACTIONS (5)
  - ATRIOVENTRICULAR BLOCK [None]
  - COLONIC POLYP [None]
  - DIVERTICULUM INTESTINAL HAEMORRHAGIC [None]
  - HAEMOGLOBIN DECREASED [None]
  - INTERNATIONAL NORMALISED RATIO DECREASED [None]
